FAERS Safety Report 24053827 (Version 2)
Quarter: 2025Q4

REPORT INFORMATION
  Report Type: Spontaneous
  Country: EU (occurrence: EU)
  Receive Date: 20240705
  Receipt Date: 20251209
  Transmission Date: 20260117
  Serious: Yes (Hospitalization, Other)
  Sender: SANDOZ
  Company Number: EU-Daleco-2024-NL-000057

PATIENT
  Age: 83 Year
  Sex: Female

DRUGS (34)
  1. TRANYLCYPROMINE [Suspect]
     Active Substance: TRANYLCYPROMINE
     Indication: Product used for unknown indication
     Dosage: MORNING: ONE AND A HALF TABLETS, EVENING: ONE AND A HALF TABLETS
     Route: 048
     Dates: end: 20240508
  2. ATROVENT [Concomitant]
     Active Substance: IPRATROPIUM BROMIDE
     Dosage: IPRATROPIUMBR AER 20MCG/D
     Route: 065
     Dates: start: 20230821, end: 20231003
  3. ATROVENT [Concomitant]
     Active Substance: IPRATROPIUM BROMIDE
     Dosage: IPRATROPIUM INH 20MCG/DO
     Route: 065
     Dates: end: 20230821
  4. ATROVENT [Concomitant]
     Active Substance: IPRATROPIUM BROMIDE
     Indication: Product used for unknown indication
     Dosage: 4 TIMES PER DAY 2 INHALATIONS, 20 MCG/DO 200 DO
     Route: 065
     Dates: start: 20231003
  5. CALCIUM CARBONATE\CHOLECALCIFEROL [Concomitant]
     Active Substance: CALCIUM CARBONATE\CHOLECALCIFEROL
     Indication: Product used for unknown indication
     Dosage: MORNING: 1 TABLET
     Route: 048
     Dates: start: 20231109
  6. CALCIUM CARBONATE\CHOLECALCIFEROL [Concomitant]
     Active Substance: CALCIUM CARBONATE\CHOLECALCIFEROL
     Dosage: CALC/VIT D3 COST 0.5 G/800 IE
     Route: 048
     Dates: end: 20231109
  7. ESOMEPRAZOLE [Concomitant]
     Active Substance: ESOMEPRAZOLE
     Indication: Product used for unknown indication
     Dosage: MORNING: 1 TABLET
     Route: 048
  8. FERROUS FUMARATE [Concomitant]
     Active Substance: FERROUS FUMARATE
     Indication: Product used for unknown indication
     Dosage: TUESDAY 1 AND FRIDAY 1
     Route: 048
  9. FERROUS FUMARATE [Concomitant]
     Active Substance: FERROUS FUMARATE
     Indication: Product used for unknown indication
     Dosage: UNK
     Route: 065
  10. FOLIC ACID [Concomitant]
     Active Substance: FOLIC ACID
     Indication: Product used for unknown indication
     Dosage: MORNING: 1 TABLET
     Route: 048
  11. Lanette wax [Concomitant]
     Indication: Product used for unknown indication
     Dosage: APPLY 2 TO 3 TIMES A DAY
     Route: 003
  12. LOCOID [Concomitant]
     Active Substance: HYDROCORTISONE BUTYRATE
     Indication: Product used for unknown indication
     Dosage: APPLY TWICE A DAY
     Route: 003
  13. POLYETHYLENE GLYCOLS [Concomitant]
     Active Substance: POLYETHYLENE GLYCOLS
     Indication: Product used for unknown indication
     Dosage: AS NEEDED TWICE A DAY 1 SACHET
     Route: 048
  14. PROLIA [Concomitant]
     Active Substance: DENOSUMAB
     Indication: Product used for unknown indication
     Dosage: 1 INJECTION, ONCE EVERY 6 MONTHS, PARENTERAL
     Route: 065
  15. DICLOFENAC DIETHYLAMINE [Concomitant]
     Active Substance: DICLOFENAC DIETHYLAMINE
     Indication: Product used for unknown indication
     Dosage: USE PER DIRECTION OF PATIENT INFORMATION LEAFLET
     Route: 003
  16. ASPIRIN [Interacting]
     Active Substance: ASPIRIN
     Indication: Product used for unknown indication
     Dosage: MORNING: 1 TABLET
     Route: 048
  17. BUMETANIDE [Interacting]
     Active Substance: BUMETANIDE
     Indication: Product used for unknown indication
     Dosage: 1 TABLET ONCE PER DAY
     Route: 048
  18. DILTIAZEM [Interacting]
     Active Substance: DILTIAZEM
     Indication: Product used for unknown indication
     Dosage: 2 TIMES PER DAY 1 TABLET
     Route: 048
     Dates: end: 20240605
  19. DARIFENACIN [Interacting]
     Active Substance: DARIFENACIN
     Indication: Product used for unknown indication
     Dosage: BEFORE THE NIGHT: 1 TABLET
     Route: 048
     Dates: end: 20240607
  20. IMDUR [Interacting]
     Active Substance: ISOSORBIDE MONONITRATE
     Indication: Product used for unknown indication
     Dosage: MORNING: 1 TABLET. IMDUR TABL MVA 60 MG
     Route: 048
     Dates: start: 20230831
  21. IMDUR [Interacting]
     Active Substance: ISOSORBIDE MONONITRATE
     Dosage: MORNING: 1 TABLET. ISOSORBID MONO RET T 60 MG
     Route: 048
     Dates: end: 20230831
  22. NAPROXEN [Interacting]
     Active Substance: NAPROXEN
     Indication: Product used for unknown indication
     Dosage: AS NEEDED 1 TABLET PER DAY
     Route: 048
  23. NITROLINGUAL [Interacting]
     Active Substance: NITROGLYCERIN
     Indication: Chest pain
     Dosage: 1 SPRAY UNDER THE TONGUE. REPEAT AFTER 5 MINUTES IF NECESSARY. NOT MORE THAN 3 SPRAYS PER ATTACK. OR
  24. ACETAMINOPHEN [Interacting]
     Active Substance: ACETAMINOPHEN
     Dosage: 2 TABLETS AS NEEDED
     Route: 048
  25. ACETAMINOPHEN [Interacting]
     Active Substance: ACETAMINOPHEN
     Indication: Product used for unknown indication
     Dosage: ACCORDING TO DIRECTIONS IN PATIENT INFORMATION LEAFLET
     Route: 048
  26. PRAVASTATIN [Interacting]
     Active Substance: PRAVASTATIN
     Indication: Product used for unknown indication
     Dosage: BEFORE THE NIGHT: 1 TABLET
     Route: 048
  27. SOLIFENACIN [Interacting]
     Active Substance: SOLIFENACIN
     Indication: Product used for unknown indication
     Dosage: 1 TABLET ONCE PER DAY
     Route: 048
  28. TRANYLCYPROMINE SULFATE [Interacting]
     Active Substance: TRANYLCYPROMINE SULFATE
     Dosage: TRACYDAL DOSAGE WAS REDUCED AFTER INITIAL START 10 YEARS AGO. REDUCED TO THE CURRENT 3 X 20MG PER DA
     Route: 048
  29. TRANYLCYPROMINE SULFATE [Interacting]
     Active Substance: TRANYLCYPROMINE SULFATE
     Dosage: AT THE TIME OF REPORTING, 1.5 TABLET IN THE MORNING, 1.5 TABLET IN THE EVENING
     Route: 048
  30. TRANYLCYPROMINE SULFATE [Interacting]
     Active Substance: TRANYLCYPROMINE SULFATE
     Indication: Psychotic disorder
     Dosage: DOSE OF TRACYDAL INCREASED TO 3 TABLETS TWICE A DAY
     Route: 048
     Dates: start: 2022
  31. TRANYLCYPROMINE SULFATE [Interacting]
     Active Substance: TRANYLCYPROMINE SULFATE
     Dosage: HEAVIER DOSES HAVE BEEN ADMINISTERED THERE IN COMBINATION WITH ANTIDEPRESSANTS. THEN REDUCED TO THE
     Route: 048
     Dates: start: 2016
  32. BECLOMETHASONE DIPROPIONATE\FORMOTEROL FUMARATE\GLYCOPYRROLATE [Interacting]
     Active Substance: BECLOMETHASONE DIPROPIONATE\FORMOTEROL FUMARATE\GLYCOPYRROLATE
     Dosage: 2 TIMES PER DAY 2 INHALATIONS, 87/5/9MCG/D 120
     Route: 065
     Dates: start: 20231213
  33. BECLOMETHASONE DIPROPIONATE\FORMOTEROL FUMARATE\GLYCOPYRROLATE [Interacting]
     Active Substance: BECLOMETHASONE DIPROPIONATE\FORMOTEROL FUMARATE\GLYCOPYRROLATE
     Indication: Product used for unknown indication
     Dosage: 87/5/9MCG/D 120
     Route: 065
     Dates: end: 20230821
  34. BECLOMETHASONE DIPROPIONATE\FORMOTEROL FUMARATE\GLYCOPYRROLATE [Interacting]
     Active Substance: BECLOMETHASONE DIPROPIONATE\FORMOTEROL FUMARATE\GLYCOPYRROLATE
     Dosage: 87/5/9MCG/D 120
     Route: 065
     Dates: start: 20230821, end: 20231213

REACTIONS (14)
  - Pneumonia [Unknown]
  - Depression [Unknown]
  - Dizziness [Recovered/Resolved]
  - Hypertension [Unknown]
  - Blood pressure fluctuation [Unknown]
  - Fall [Unknown]
  - Potentiating drug interaction [Recovered/Resolved]
  - Paraesthesia [Recovered/Resolved]
  - Malaise [Recovered/Resolved]
  - Muscular weakness [Recovered/Resolved]
  - Diet noncompliance [Unknown]
  - Drug effective for unapproved indication [Unknown]
  - Prescribed overdose [Recovered/Resolved]
  - Labelled drug-food interaction medication error [Unknown]

NARRATIVE: CASE EVENT DATE: 20240530
